FAERS Safety Report 7897716-1 (Version None)
Quarter: 2011Q4

REPORT INFORMATION
  Report Type: 
  Country: None (occurrence: None)
  Receive Date: 20111107
  Receipt Date: 20111101
  Transmission Date: 20120403
  Serious: Yes (Hospitalization)
  Sender: FDA-Public Use
  Company Number: US-GILEAD-2011-0043850

PATIENT
  Sex: Female

DRUGS (4)
  1. LETAIRIS [Suspect]
     Indication: PULMONARY HYPERTENSION
     Route: 048
     Dates: start: 20110413
  2. FLOLAN [Concomitant]
  3. ADCIRCA [Concomitant]
  4. LETAIRIS [Suspect]
     Indication: SCLERODERMA

REACTIONS (5)
  - CHEST DISCOMFORT [None]
  - CHEST PAIN [None]
  - ANGIOEDEMA [None]
  - DYSPNOEA [None]
  - TREATMENT FAILURE [None]
